FAERS Safety Report 25690542 (Version 1)
Quarter: 2025Q3

REPORT INFORMATION
  Report Type: Spontaneous
  Country: VN (occurrence: VN)
  Receive Date: 20250818
  Receipt Date: 20250818
  Transmission Date: 20251020
  Serious: Yes (Life-Threatening)
  Sender: PFIZER
  Company Number: VN-PFIZER INC-PV202500098435

PATIENT
  Age: 81 Year
  Sex: Female
  Weight: 53 kg

DRUGS (4)
  1. UNASYN [Suspect]
     Active Substance: AMPICILLIN SODIUM\SULBACTAM SODIUM
     Indication: Acute sinusitis
     Dosage: 2 DF, 2X/DAY
     Route: 042
     Dates: start: 20250811, end: 20250811
  2. UNASYN [Suspect]
     Active Substance: AMPICILLIN SODIUM\SULBACTAM SODIUM
     Indication: Pharyngitis
  3. STACYTINE [Concomitant]
     Dosage: 1 CAPSULE/DAY
     Route: 048
  4. SODIUM CHLORIDE [Concomitant]
     Active Substance: SODIUM CHLORIDE
     Route: 042

REACTIONS (4)
  - Hypoaesthesia [Recovered/Resolved]
  - Discomfort [Recovered/Resolved]
  - Chest pain [Recovered/Resolved]
  - Pulse absent [Recovered/Resolved]

NARRATIVE: CASE EVENT DATE: 20250811
